FAERS Safety Report 9225737 (Version 1)
Quarter: 2013Q2

REPORT INFORMATION
  Report Type: Spontaneous
  Country: GB (occurrence: GB)
  Receive Date: 20130411
  Receipt Date: 20130411
  Transmission Date: 20140414
  Serious: Yes (Hospitalization)
  Sender: FDA-Public Use
  Company Number: GB-GLAXOSMITHKLINE-B0880563A

PATIENT
  Age: 39 Year
  Sex: Female
  Weight: 60 kg

DRUGS (8)
  1. ONDANSETRON [Suspect]
     Indication: PROPHYLAXIS OF NAUSEA AND VOMITING
  2. CYCLIZINE [Suspect]
     Indication: PROCEDURAL NAUSEA
     Route: 042
  3. PROPOFOL [Concomitant]
  4. PARECOXIB SODIUM [Concomitant]
  5. FENTANYL [Concomitant]
  6. MIDAZOLAM [Concomitant]
  7. SEVOFLURANE [Concomitant]
  8. PARACETAMOL [Concomitant]

REACTIONS (7)
  - Depressed level of consciousness [Recovered/Resolved]
  - Oculogyric crisis [Recovered/Resolved]
  - Delayed recovery from anaesthesia [Recovered/Resolved]
  - Somnolence [Recovered/Resolved]
  - Nausea [Recovered/Resolved]
  - Drug ineffective [Recovered/Resolved]
  - Dystonia [Recovered/Resolved]
